FAERS Safety Report 9570259 (Version 1)
Quarter: 2013Q3

REPORT INFORMATION
  Report Type: Spontaneous
  Country: US (occurrence: None)
  Receive Date: 20130926
  Receipt Date: 20130926
  Transmission Date: 20140515
  Serious: No
  Sender: FDA-Public Use
  Company Number: None

PATIENT
  Age: 52 Year
  Sex: Female
  Weight: 72.58 kg

DRUGS (1)
  1. CIPROFLOXACN [Suspect]
     Indication: URINARY TRACT INFECTION
     Dosage: 1, TWICE DAILY, TAKEN BY MOUTH?7 DAYS
     Route: 048

REACTIONS (5)
  - Abdominal pain [None]
  - Diarrhoea [None]
  - Nausea [None]
  - Activities of daily living impaired [None]
  - Insomnia [None]
